FAERS Safety Report 8052628-8 (Version None)
Quarter: 2012Q1

REPORT INFORMATION
  Report Type: 
  Country: None (occurrence: None)
  Receive Date: 20120118
  Receipt Date: 20120113
  Transmission Date: 20120608
  Serious: Yes (Death)
  Sender: FDA-Public Use
  Company Number: MY-ASTELLAS-2012US000181

PATIENT
  Sex: Female
  Weight: 70 kg

DRUGS (2)
  1. TARCEVA [Suspect]
     Indication: LUNG CARCINOMA CELL TYPE UNSPECIFIED STAGE IV
     Dosage: 150 MG, UID/QD
     Route: 048
     Dates: start: 20111220
  2. DEXAMETHASONE TAB [Concomitant]
     Indication: LUNG NEOPLASM MALIGNANT
     Dosage: 4 MG, TID
     Route: 042
     Dates: start: 20111201, end: 20111230

REACTIONS (1)
  - DEATH [None]
